FAERS Safety Report 8210372-8 (Version None)
Quarter: 2012Q1

REPORT INFORMATION
  Report Type: 
  Country: None (occurrence: None)
  Receive Date: 20120314
  Receipt Date: 20120223
  Transmission Date: 20120608
  Serious: No
  Sender: FDA-Public Use
  Company Number: US-ASTRAZENECA-2012SE10844

PATIENT
  Age: 55 Year
  Sex: Female
  Weight: 61.2 kg

DRUGS (4)
  1. TOPROL-XL [Suspect]
     Indication: BLOOD PRESSURE INCREASED
     Route: 048
     Dates: start: 20010101, end: 20070101
  2. LEVOXYL [Suspect]
     Indication: THYROID HORMONE REPLACEMENT THERAPY
     Route: 065
     Dates: start: 19870101
  3. TOPROL-XL [Suspect]
     Route: 048
     Dates: start: 20070801, end: 20100201
  4. TOPROL-XL [Suspect]
     Route: 048

REACTIONS (9)
  - DRY SKIN [None]
  - ALOPECIA [None]
  - NECK DEFORMITY [None]
  - HYPOAESTHESIA [None]
  - BONE PAIN [None]
  - NECK PAIN [None]
  - THROAT TIGHTNESS [None]
  - GASTROOESOPHAGEAL REFLUX DISEASE [None]
  - SKIN DISORDER [None]
